FAERS Safety Report 5583092-6 (Version None)
Quarter: 2008Q1

REPORT INFORMATION
  Report Type: 
  Country: None (occurrence: None)
  Receive Date: 20080107
  Receipt Date: 20080103
  Transmission Date: 20080703
  Serious: Yes (Hospitalization)
  Sender: FDA-Public Use
  Company Number: US-BRISTOL-MYERS SQUIBB COMPANY-14031371

PATIENT
  Sex: Male

DRUGS (1)
  1. ERBITUX [Suspect]
     Dosage: THIRD TREATMENT 25DEC07-01JAN08.
     Dates: start: 20071225, end: 20080101

REACTIONS (1)
  - INTESTINAL PERFORATION [None]
